FAERS Safety Report 6330334-5 (Version None)
Quarter: 2009Q3

REPORT INFORMATION
  Report Type: 
  Country: None (occurrence: None)
  Receive Date: 20090826
  Receipt Date: 20090826
  Transmission Date: 20100115
  Serious: Yes (Life-Threatening, Other)
  Sender: FDA-Public Use
  Company Number: None

PATIENT
  Sex: Female

DRUGS (1)
  1. TEGRETOL [Suspect]
     Dosage: ORAL 4 X DAY
     Route: 048
     Dates: start: 19860101, end: 20090101

REACTIONS (2)
  - CONVULSION [None]
  - PRODUCT QUALITY ISSUE [None]
